FAERS Safety Report 12005696 (Version 5)
Quarter: 2019Q1

REPORT INFORMATION
  Report Type: Spontaneous
  Country: FR (occurrence: FR)
  Receive Date: 20160205
  Receipt Date: 20190111
  Transmission Date: 20190417
  Serious: Yes (Life-Threatening, Hospitalization, Other)
  Sender: FDA-Public Use
  Company Number: FR-ALEXION PHARMACEUTICALS INC-A201504158

PATIENT
  Age: 34 Year
  Sex: Female
  Weight: 74 kg

DRUGS (8)
  1. SOLIRIS [Suspect]
     Active Substance: ECULIZUMAB
     Indication: PAROXYSMAL NOCTURNAL HAEMOGLOBINURIA
     Dosage: UNK
     Route: 042
  2. MENVEO [Interacting]
     Active Substance: NEISSERIA MENINGITIDIS GROUP A CAPSULAR OLIGOSACCHARIDE DIPHTHERIA CRM197 PROTEIN CONJUGATE ANTIGEN\NEISSERIA MENINGITIDIS GROUP C CAPSULAR OLIGOSACCHARIDE DIPHTHERIA CRM197 PROTEIN CONJUGATE ANTIGEN\NEISSERIA MENINGITIDIS GROUP W-135 CAPSULAR OLIGOSACCHARIDE DIPHTHERIA CRM197 PROTEIN CONJUGATE ANTI
     Indication: IMMUNISATION
     Dosage: UNK
     Route: 065
     Dates: start: 201208, end: 201208
  3. ORACILLIN                          /00001802/ [Concomitant]
     Active Substance: PENICILLIN V POTASSIUM
     Indication: ANTIBIOTIC PROPHYLAXIS
     Dosage: UNK
     Route: 065
     Dates: start: 2007
  4. SOLIRIS [Interacting]
     Active Substance: ECULIZUMAB
     Dosage: 900 MG, UNK
     Route: 042
     Dates: start: 200703, end: 20150925
  5. SOLIRIS [Interacting]
     Active Substance: ECULIZUMAB
     Dosage: 1 DF, Q15 DAYS
     Route: 042
     Dates: start: 2007, end: 20150925
  6. DEPAKOTE [Concomitant]
     Active Substance: DIVALPROEX SODIUM
     Indication: BIPOLAR DISORDER
     Dosage: UNK
     Route: 065
  7. VENLAFAXINE [Concomitant]
     Active Substance: VENLAFAXINE HYDROCHLORIDE
     Indication: BIPOLAR DISORDER
     Dosage: UNK
     Route: 065
  8. MENVEO [Interacting]
     Active Substance: NEISSERIA MENINGITIDIS GROUP A CAPSULAR OLIGOSACCHARIDE DIPHTHERIA CRM197 PROTEIN CONJUGATE ANTIGEN\NEISSERIA MENINGITIDIS GROUP C CAPSULAR OLIGOSACCHARIDE DIPHTHERIA CRM197 PROTEIN CONJUGATE ANTIGEN\NEISSERIA MENINGITIDIS GROUP W-135 CAPSULAR OLIGOSACCHARIDE DIPHTHERIA CRM197 PROTEIN CONJUGATE ANTI
     Indication: PROPHYLAXIS
     Dosage: 1 DF, UNK
     Route: 030
     Dates: start: 20120612, end: 20120612

REACTIONS (15)
  - Angiopathy [Unknown]
  - Septic shock [Recovered/Resolved]
  - Drug ineffective [Recovered/Resolved]
  - Cholestasis [Unknown]
  - Vaccination failure [Unknown]
  - Meningitis meningococcal [Recovered/Resolved]
  - Bone marrow failure [Unknown]
  - Acute kidney injury [Recovering/Resolving]
  - Haemodynamic instability [Recovered/Resolved]
  - Meningococcal sepsis [Recovered/Resolved]
  - Hepatitis [Recovering/Resolving]
  - Drug interaction [Unknown]
  - Haemolytic anaemia [Unknown]
  - Pleural effusion [Unknown]
  - Haemolysis [Unknown]

NARRATIVE: CASE EVENT DATE: 201503
